FAERS Safety Report 9598334 (Version 1)
Quarter: 2013Q4

REPORT INFORMATION
  Report Type: Spontaneous
  Country: US (occurrence: US)
  Receive Date: 20131004
  Receipt Date: 20131004
  Transmission Date: 20140711
  Serious: No
  Sender: FDA-Public Use
  Company Number: US-AMGEN-USASP2013023356

PATIENT
  Age: 56 Year
  Sex: Female
  Weight: 72.56 kg

DRUGS (24)
  1. ENBREL [Suspect]
     Indication: PRODUCT USED FOR UNKNOWN INDICATION
     Dosage: 50 MG, QWK
     Route: 058
  2. CENTRUM SILVER                     /06011601/ [Concomitant]
     Dosage: UNK
     Route: 048
  3. AMBIEN CR [Concomitant]
     Dosage: 6.25 MG, UNK
     Route: 048
  4. CELEBREX [Concomitant]
     Dosage: 100 MG, UNK
     Route: 048
  5. FLUTICASONE [Concomitant]
     Dosage: 50 MUG, UNK
  6. MIRTAZAPINE [Concomitant]
     Dosage: 30 MG, UNK
     Route: 048
  7. PREDNISONE [Concomitant]
     Dosage: 1 MG, UNK
     Route: 048
  8. LORAZEPAM [Concomitant]
     Dosage: 2 MG, UNK
  9. DIOVAN [Concomitant]
     Dosage: 160 MG, UNK
     Route: 048
  10. GABAPENTIN [Concomitant]
     Dosage: 300 MG, UNK
     Route: 048
  11. QUININE SULF [Concomitant]
     Dosage: 324 MG, UNK
     Route: 048
  12. CITRACAL PLUS [Concomitant]
     Dosage: UNK
     Route: 048
  13. LEVOTHYROXIN [Concomitant]
     Dosage: 300 MUG, UNK
     Route: 048
  14. VITAMIN D                          /00107901/ [Concomitant]
     Dosage: 50000 UNIT, UNK
     Route: 048
  15. TIZANIDINE [Concomitant]
     Dosage: 4 MG, UNK
     Route: 048
  16. OXYCODONE [Concomitant]
     Dosage: 5 MG, UNK
     Route: 048
  17. LEXAPRO [Concomitant]
     Dosage: 20 MG, UNK
     Route: 048
  18. ADDERALL [Concomitant]
     Dosage: 10 MG, UNK
     Route: 048
  19. OXYCONTIN [Concomitant]
     Dosage: 20 MG, UNK
     Route: 048
  20. PROAIR HFA [Concomitant]
     Dosage: UNK
  21. DEXILANT [Concomitant]
     Dosage: 30 MG, UNK
     Route: 048
  22. GLUCOSE + CHONDROITIN [Concomitant]
     Dosage: UNK
  23. CYTOMEL [Concomitant]
     Dosage: 50 MUG, UNK
     Route: 048
  24. NITROQUICK [Concomitant]
     Dosage: 0.3 MG, UNK
     Route: 058

REACTIONS (6)
  - Rhinorrhoea [Unknown]
  - Musculoskeletal stiffness [Unknown]
  - Pain [Unknown]
  - Hyperhidrosis [Unknown]
  - Cough [Unknown]
  - Urine odour abnormal [Unknown]
